FAERS Safety Report 14412592 (Version 3)
Quarter: 2018Q1

REPORT INFORMATION
  Report Type: Report from Study
  Country: None (occurrence: LB)
  Receive Date: 20180119
  Receipt Date: 20180308
  Transmission Date: 20180509
  Serious: Yes (Hospitalization, Disabling, Other)
  Sender: FDA-Public Use
  Company Number: LB-ABBVIE-18K-093-2226213-00

PATIENT
  Age: 39 Year
  Sex: Female
  Weight: 68 kg

DRUGS (3)
  1. ENDOCLEAR [Concomitant]
     Indication: GLAUCOMA
     Route: 047
     Dates: end: 201711
  2. HUMIRA [Suspect]
     Active Substance: ADALIMUMAB
     Indication: COLITIS ULCERATIVE
     Route: 058
     Dates: start: 20170606, end: 20170606
  3. HUMIRA [Suspect]
     Active Substance: ADALIMUMAB
     Route: 058
     Dates: start: 20170620, end: 201711

REACTIONS (3)
  - Neuralgia [Not Recovered/Not Resolved]
  - Eye inflammation [Recovered/Resolved with Sequelae]
  - Vision blurred [Recovered/Resolved]

NARRATIVE: CASE EVENT DATE: 201711
